FAERS Safety Report 4783527-2 (Version None)
Quarter: 2005Q3

REPORT INFORMATION
  Report Type: 
  Country: None (occurrence: None)
  Receive Date: 20050929
  Receipt Date: 20050923
  Transmission Date: 20060218
  Serious: Yes (Death, Other)
  Sender: FDA-Public Use
  Company Number: PHBS2005TR14127

PATIENT
  Age: 18 Year
  Sex: Male

DRUGS (8)
  1. METHOTREXATE [Concomitant]
     Indication: BONE MARROW TRANSPLANT
     Dosage: 15 MG/M2/D
     Route: 065
  2. METHOTREXATE [Concomitant]
     Dosage: 10 MG/M2/D
     Route: 065
  3. CYCLOPHOSPHAMIDE [Concomitant]
     Indication: BONE MARROW TRANSPLANT
     Dosage: 60 MG/KG/D
  4. IRRADIATION [Concomitant]
  5. DOXAZOSIN MESYLATE [Concomitant]
     Dosage: 4 MG/D
  6. CYCLOSPORINE [Suspect]
     Indication: BONE MARROW TRANSPLANT
     Dosage: UNKNOWN
  7. CYCLOSPORINE [Suspect]
     Dosage: 12.5 MG/KG/D
     Route: 065
  8. FUROSEMIDE [Concomitant]
     Dosage: 40 MG/D

REACTIONS (26)
  - BLOOD BILIRUBIN INCREASED [None]
  - BLOOD CREATININE INCREASED [None]
  - BLOOD LACTATE DEHYDROGENASE INCREASED [None]
  - BLOODY AIRWAY DISCHARGE [None]
  - COUGH [None]
  - CYTOMEGALOVIRUS ANTIGEN POSITIVE [None]
  - DIFFUSE ALVEOLAR DAMAGE [None]
  - DRUG LEVEL INCREASED [None]
  - DRUG TOXICITY [None]
  - DYSPNOEA [None]
  - GRAFT VERSUS HOST DISEASE [None]
  - HAEMODIALYSIS [None]
  - HAEMOGLOBIN DECREASED [None]
  - HAEMOPTYSIS [None]
  - HEADACHE [None]
  - HYPERTENSION [None]
  - MALAISE [None]
  - MICROANGIOPATHIC HAEMOLYTIC ANAEMIA [None]
  - NAUSEA [None]
  - PLATELET COUNT DECREASED [None]
  - PO2 DECREASED [None]
  - PULMONARY HAEMORRHAGE [None]
  - RED BLOOD CELL ABNORMALITY [None]
  - RENAL IMPAIRMENT [None]
  - THROMBOTIC THROMBOCYTOPENIC PURPURA [None]
  - VOMITING [None]
